FAERS Safety Report 8600447-3 (Version None)
Quarter: 2012Q3

REPORT INFORMATION
  Report Type: 
  Country: None (occurrence: None)
  Receive Date: 20120817
  Receipt Date: 20120807
  Transmission Date: 20120928
  Serious: Yes (Hospitalization, Other)
  Sender: FDA-Public Use
  Company Number: US-BAYER-2012-073399

PATIENT
  Age: 42 Year
  Sex: Female
  Weight: 86.621 kg

DRUGS (11)
  1. LEXAPRO [Concomitant]
     Indication: DEPRESSION
     Dosage: 5 MG, DAILY
     Dates: start: 20030101
  2. PROPRANOLOL [Concomitant]
     Dosage: UNK
     Dates: start: 20090101
  3. EXCEDRIN [ACETYLSALICYLIC ACID,CAFFEINE,PARACETAMOL,SALICYLAMIDE] [Concomitant]
     Dosage: UNK UNK, PRN
  4. AMOXICILLIN [Concomitant]
     Dosage: UNK
     Dates: start: 20060101
  5. IBUPROFEN [Concomitant]
     Indication: HEADACHE
     Dosage: UNK
     Dates: start: 20090101
  6. DROSPIRENONE AND ETHINYL ESTRADIOL [Suspect]
     Indication: CONTRACEPTION
     Dosage: UNK
     Dates: start: 20080101, end: 20090101
  7. AMERGE [Concomitant]
     Indication: HEADACHE
     Dosage: 2.5 MG, DAILY PRN
     Dates: start: 20060101
  8. AMBIEN [Concomitant]
     Dosage: 2.5 MG, HS PRN
  9. FOLTRIN [Concomitant]
     Indication: ANAEMIA
     Dosage: 1 TABLET DAILY
     Dates: start: 20030101
  10. PRAVASTATIN [Concomitant]
     Dosage: UNK
     Dates: start: 20090101
  11. YASMIN [Suspect]
     Indication: CONTRACEPTION
     Dosage: UNK
     Dates: start: 20060429, end: 20090101

REACTIONS (14)
  - POST-TRAUMATIC STRESS DISORDER [None]
  - DEPRESSION [None]
  - MENTAL STATUS CHANGES [None]
  - MOOD SWINGS [None]
  - WEIGHT INCREASED [None]
  - BLOOD PRESSURE INCREASED [None]
  - SYNCOPE [None]
  - PAIN [None]
  - INJURY [None]
  - MIGRAINE [None]
  - EMOTIONAL DISTRESS [None]
  - TRANSIENT ISCHAEMIC ATTACK [None]
  - ANXIETY [None]
  - GENERAL PHYSICAL HEALTH DETERIORATION [None]
